FAERS Safety Report 8486398-6 (Version None)
Quarter: 2012Q3

REPORT INFORMATION
  Report Type: 
  Country: None (occurrence: None)
  Receive Date: 20120703
  Receipt Date: 20120626
  Transmission Date: 20120928
  Serious: Yes (Other)
  Sender: FDA-Public Use
  Company Number: DE-GLAXOSMITHKLINE-D0076092A

PATIENT
  Age: 22 Year
  Sex: Male

DRUGS (1)
  1. ARIXTRA [Suspect]
     Route: 058
     Dates: start: 20120101

REACTIONS (1)
  - RHABDOMYOLYSIS [None]
